FAERS Safety Report 9303005 (Version 1)
Quarter: 2013Q2

REPORT INFORMATION
  Report Type: Spontaneous
  Country: US (occurrence: US)
  Receive Date: 20130522
  Receipt Date: 20130522
  Transmission Date: 20140414
  Serious: Yes (Congenital Anomaly, Other)
  Sender: FDA-Public Use
  Company Number: US-PFIZER INC-2013154093

PATIENT
  Sex: Male

DRUGS (1)
  1. ZOLOFT [Suspect]
     Dosage: UNK
     Route: 064
     Dates: start: 200909

REACTIONS (4)
  - Foetal exposure during pregnancy [Unknown]
  - Patent ductus arteriosus [Unknown]
  - Bicuspid aortic valve [Unknown]
  - Atrial septal defect [Unknown]
